FAERS Safety Report 17298620 (Version 1)
Quarter: 2020Q1

REPORT INFORMATION
  Report Type: Spontaneous
  Country: JP (occurrence: JP)
  Receive Date: 20200121
  Receipt Date: 20200121
  Transmission Date: 20200409
  Serious: Yes (Other)
  Sender: FDA-Public Use
  Company Number: NVSJ2019JP006366

PATIENT
  Age: 37 Year
  Sex: Male

DRUGS (7)
  1. PREDONINE [Concomitant]
     Active Substance: PREDNISOLONE
     Indication: PRODUCT USED FOR UNKNOWN INDICATION
     Dosage: UNK
     Route: 065
  2. EVEROLIMUS TABLETS CE [Suspect]
     Active Substance: EVEROLIMUS
     Dosage: 4 DF
     Route: 065
  3. EVEROLIMUS TABLETS CE [Suspect]
     Active Substance: EVEROLIMUS
     Indication: IMMUNOSUPPRESSANT DRUG THERAPY
     Dosage: 3 DF
     Route: 065
  4. TACROLIMUS. [Suspect]
     Active Substance: TACROLIMUS
     Indication: IMMUNOSUPPRESSANT DRUG THERAPY
     Dosage: UNK NG/ML
     Route: 065
  5. MMF [Concomitant]
     Active Substance: MYCOPHENOLATE MOFETIL
     Dosage: 1250 DF
     Route: 065
  6. MMF [Concomitant]
     Active Substance: MYCOPHENOLATE MOFETIL
     Dosage: 2000 DF
     Route: 065
  7. MMF [Concomitant]
     Active Substance: MYCOPHENOLATE MOFETIL
     Indication: IMMUNOSUPPRESSANT DRUG THERAPY
     Dosage: 2500 DF
     Route: 065

REACTIONS (2)
  - Blood creatinine increased [Unknown]
  - Kidney transplant rejection [Unknown]
